FAERS Safety Report 4828734-5 (Version None)
Quarter: 2005Q4

REPORT INFORMATION
  Report Type: 
  Country: None (occurrence: None)
  Receive Date: 20051115
  Receipt Date: 20050919
  Transmission Date: 20060501
  Serious: Yes (Death, Hospitalization, Other)
  Sender: FDA-Public Use
  Company Number: US-MERCK-0509USA02634

PATIENT
  Age: 76 Year
  Sex: Female
  Weight: 59 kg

DRUGS (16)
  1. VIOXX [Suspect]
     Indication: ARTHRITIS
     Route: 048
     Dates: start: 19980101, end: 20021225
  2. ZOCOR [Concomitant]
     Route: 065
  3. PLAVIX [Concomitant]
     Route: 065
  4. PRIMIDONE [Concomitant]
     Route: 065
  5. PHENAZOPYRIDINE HCL TAB [Concomitant]
     Route: 065
  6. CARDIZEM [Concomitant]
     Route: 065
  7. NASONEX [Concomitant]
     Route: 065
  8. HUMALOG [Concomitant]
     Route: 058
  9. ACCUPRIL [Concomitant]
     Route: 065
  10. LEVSIN [Concomitant]
     Route: 065
  11. POTASSIUM (UNSPECIFIED) [Concomitant]
     Route: 065
  12. HYDROCHLOROTHIAZIDE [Concomitant]
     Route: 065
  13. SYNTHROID [Concomitant]
     Route: 065
  14. AZITHROMYCIN [Concomitant]
     Route: 065
  15. CLINDAMYCIN [Concomitant]
     Route: 065
  16. CEFTRIAXONE SODIUM [Concomitant]
     Route: 065

REACTIONS (10)
  - CARDIO-RESPIRATORY ARREST [None]
  - CEREBROVASCULAR ACCIDENT [None]
  - CHRONIC OBSTRUCTIVE PULMONARY DISEASE [None]
  - COUGH [None]
  - GENERAL SYMPTOM [None]
  - INJURY [None]
  - INTERMITTENT CLAUDICATION [None]
  - PALPITATIONS [None]
  - PNEUMONIA [None]
  - RENAL FAILURE ACUTE [None]
